FAERS Safety Report 11689234 (Version 1)
Quarter: 2015Q4

REPORT INFORMATION
  Report Type: Spontaneous
  Country: JP (occurrence: JP)
  Receive Date: 20151102
  Receipt Date: 20151102
  Transmission Date: 20160304
  Serious: Yes (Hospitalization, Other)
  Sender: FDA-Public Use
  Company Number: JP-009507513-1506JPN007214

PATIENT
  Age: 78 Year
  Sex: Female
  Weight: 38 kg

DRUGS (11)
  1. ELENTAL [Concomitant]
     Active Substance: AMINO ACIDS\CARBOHYDRATES\MINERALS\SOYBEAN OIL\VITAMINS
     Dosage: TOTAL DAILY DOSE 160 G
     Route: 048
     Dates: start: 20130827
  2. FOSAMAC TABLETS-5 [Suspect]
     Active Substance: ALENDRONATE SODIUM
     Indication: NEOPLASM MALIGNANT
     Dosage: 35 MG, QW
     Route: 048
     Dates: start: 20100908, end: 20130908
  3. IMURAN [Concomitant]
     Active Substance: AZATHIOPRINE
     Dosage: TOTAL DAILY DOSE 50 MG
     Route: 048
     Dates: start: 20101105
  4. PARIET [Concomitant]
     Active Substance: RABEPRAZOLE SODIUM
     Dosage: TOTAL DAILY DOSE 10 MG
     Route: 048
     Dates: start: 20100908
  5. GASMOTIN [Concomitant]
     Active Substance: MOSAPRIDE CITRATE
     Dosage: TOTAL DAILY DOSE 15 MG
     Route: 048
     Dates: start: 20120921
  6. HUMIRA [Concomitant]
     Active Substance: ADALIMUMAB
     Dosage: 40 MG, BID
     Route: 048
     Dates: start: 20141229
  7. PENTASA [Concomitant]
     Active Substance: MESALAMINE
     Dosage: TOTAL DAILY DOSE 1000 MG
     Route: 048
     Dates: start: 20100406
  8. ISCOTIN [Concomitant]
     Active Substance: ISONIAZID
     Dosage: TOTAL DAILY DOSE 200 MG
     Route: 048
     Dates: start: 20100426
  9. METHYCOBAL [Concomitant]
     Active Substance: METHYLCOBALAMIN
     Dosage: TOTAL DAILY DOSE 1500 MG
     Route: 048
     Dates: start: 20121108
  10. PREDONINE [Concomitant]
     Active Substance: PREDNISOLONE\PREDNISOLONE ACETATE\PREDNISOLONE SODIUM SUCCINATE
     Dosage: DAILY DOSE UNKNOWN
     Route: 065
  11. AMLODIN (AMLODIPINE BESYLATE) [Concomitant]
     Active Substance: AMLODIPINE BESYLATE
     Dosage: TOTAL DAILY DOSE 5 MG
     Route: 048
     Dates: start: 20120907

REACTIONS (3)
  - Osteonecrosis of jaw [Recovering/Resolving]
  - Product use issue [Unknown]
  - Periodontitis [Recovering/Resolving]

NARRATIVE: CASE EVENT DATE: 201309
